FAERS Safety Report 6993407-X (Version None)
Quarter: 2010Q3

REPORT INFORMATION
  Report Type: 
  Country: None (occurrence: None)
  Receive Date: 20100917
  Receipt Date: 20100217
  Transmission Date: 20110219
  Serious: No
  Sender: FDA-Public Use
  Company Number: US-ASTRAZENECA-2010SE06925

PATIENT
  Age: 78 Year
  Sex: Male
  Weight: 47.6 kg

DRUGS (2)
  1. SEROQUEL [Suspect]
     Indication: SLEEP DISORDER
     Route: 048
     Dates: start: 20100101
  2. MERTAZPINE [Concomitant]

REACTIONS (2)
  - DYSPHAGIA [None]
  - FOREIGN BODY [None]
